FAERS Safety Report 9539940 (Version 3)
Quarter: 2014Q4

REPORT INFORMATION
  Report Type: Spontaneous
  Country: CA (occurrence: CA)
  Receive Date: 20130920
  Receipt Date: 20141009
  Transmission Date: 20150529
  Serious: Yes (Death, Hospitalization)
  Sender: FDA-Public Use
  Company Number: CA-ROCHE-1273510

PATIENT
  Age: 63 Year
  Sex: Female

DRUGS (20)
  1. LEVOFLOXACIN. [Concomitant]
     Active Substance: LEVOFLOXACIN
  2. PRIMAQUINE [Concomitant]
     Active Substance: PRIMAQUINE PHOSPHATE
     Route: 065
  3. PROCTOSONE [Concomitant]
     Active Substance: DIBUCAINE\ESCULIN\HYDROCORTISONE\NEOMYCIN
  4. RITUXAN [Suspect]
     Active Substance: RITUXIMAB
     Dosage: THERAPY DURATION: ONCE
     Route: 042
     Dates: start: 20120113
  5. PREDNISONE. [Concomitant]
     Active Substance: PREDNISONE
  6. SALBUTAMOL [Concomitant]
     Active Substance: ALBUTEROL
  7. NYSTATIN. [Concomitant]
     Active Substance: NYSTATIN
  8. RITUXAN [Suspect]
     Active Substance: RITUXIMAB
     Indication: POST TRANSPLANT LYMPHOPROLIFERATIVE DISORDER
     Dosage: THERAPY DURATION: 9.0 DAYS
     Route: 042
     Dates: start: 20110719
  9. CESAMET [Concomitant]
     Active Substance: NABILONE
  10. HYDROMORPHONE [Concomitant]
     Active Substance: HYDROMORPHONE
  11. LANSOPRAZOLE. [Concomitant]
     Active Substance: LANSOPRAZOLE
  12. RITUXAN [Suspect]
     Active Substance: RITUXIMAB
     Dosage: THERAPY DURATION: ONCE
     Route: 042
     Dates: start: 20110725
  13. CLINDAMYCIN [Concomitant]
     Active Substance: CLINDAMYCIN\CLINDAMYCIN PHOSPHATE
  14. RITUXAN [Suspect]
     Active Substance: RITUXIMAB
     Dosage: THERAPY DURATION: ONCE
     Route: 042
     Dates: start: 20111230
  15. CEFAZOLIN [Concomitant]
     Active Substance: CEFAZOLIN
     Route: 030
  16. IPRATROPIUM [Concomitant]
     Active Substance: IPRATROPIUM
  17. RITUXAN [Suspect]
     Active Substance: RITUXIMAB
     Dosage: THERAPY DURATION: ONCE
     Route: 042
     Dates: start: 20110721
  18. RITUXAN [Suspect]
     Active Substance: RITUXIMAB
     Dosage: THERAPY DURATION: ONCE
     Route: 042
     Dates: start: 20110727
  19. CEFTAZIDIME. [Concomitant]
     Active Substance: CEFTAZIDIME
     Route: 030
  20. SOLU-MEDROL [Concomitant]
     Active Substance: METHYLPREDNISOLONE SODIUM SUCCINATE

REACTIONS (10)
  - Thrombocytopenia [Fatal]
  - Neutropenia [Fatal]
  - Respiratory failure [Fatal]
  - Lung disorder [Fatal]
  - Cognitive disorder [Fatal]
  - Pneumocystis jirovecii pneumonia [Fatal]
  - Progressive multifocal leukoencephalopathy [Fatal]
  - Nervous system disorder [Fatal]
  - Pancytopenia [Fatal]
  - Leukopenia [Fatal]
